FAERS Safety Report 9780790 (Version 1)
Quarter: 2013Q4

REPORT INFORMATION
  Report Type: Spontaneous
  Country: FR (occurrence: FR)
  Receive Date: 20131224
  Receipt Date: 20131224
  Transmission Date: 20140711
  Serious: Yes (Life-Threatening, Other)
  Sender: FDA-Public Use
  Company Number: FR-ELI_LILLY_AND_COMPANY-FR201312007069

PATIENT
  Age: 0 Day
  Sex: 0
  Weight: 3.34 kg

DRUGS (2)
  1. CYMBALTA [Suspect]
     Indication: DEPRESSION
     Dosage: 30 MG, QD
     Route: 064
  2. LYSANXIA [Suspect]
     Indication: DEPRESSION
     Dosage: 10 MG, BID
     Route: 064

REACTIONS (8)
  - Neonatal respiratory distress syndrome [Recovered/Resolved]
  - Feeding disorder neonatal [Recovered/Resolved]
  - Hypotonia neonatal [Recovered/Resolved]
  - Abnormal behaviour [Recovered/Resolved]
  - Irritability [Recovered/Resolved]
  - Apgar score low [Recovered/Resolved]
  - Low birth weight baby [Recovered/Resolved]
  - Foetal exposure during pregnancy [Recovered/Resolved]
